FAERS Safety Report 22258909 (Version 3)
Quarter: 2023Q2

REPORT INFORMATION
  Report Type: Spontaneous
  Country: US (occurrence: US)
  Receive Date: 20230427
  Receipt Date: 20230619
  Transmission Date: 20230722
  Serious: Yes (Hospitalization, Other)
  Sender: FDA-Public Use
  Company Number: US-PFIZER INC-202300163765

PATIENT
  Age: 19 Year
  Sex: Female
  Weight: 26.4 kg

DRUGS (1)
  1. GENOTROPIN [Suspect]
     Active Substance: SOMATROPIN
     Indication: Bone disorder
     Dosage: 1.2 MG, 1X/DAY (BY INJECTION)
     Dates: start: 2020

REACTIONS (2)
  - Cardiac disorder [Recovering/Resolving]
  - Device use issue [Unknown]
